FAERS Safety Report 9700662 (Version 3)
Quarter: 2013Q4

REPORT INFORMATION
  Report Type: Report from Study
  Country: AU (occurrence: AU)
  Receive Date: 20131121
  Receipt Date: 20131209
  Transmission Date: 20140711
  Serious: Yes (Other)
  Sender: FDA-Public Use
  Company Number: PHHY2013AU123852

PATIENT
  Age: 75 Year
  Sex: Female

DRUGS (8)
  1. ACLASTA [Suspect]
     Dosage: 5 MG, UNK
     Route: 042
     Dates: start: 20111014
  2. ACLASTA [Suspect]
     Dosage: 5 MG, UNK
     Route: 042
     Dates: start: 20121002
  3. ACLASTA [Suspect]
     Dosage: 5 MG (INCOMPLETE), ONLY GOT 90ML OF SOLUTION
     Route: 042
     Dates: start: 20131029
  4. COVERSYL PLUS [Concomitant]
     Dosage: 5/1.25 ONE DAILY
     Route: 048
     Dates: start: 200512
  5. CELEBREX [Concomitant]
     Dosage: 20 G, ONE DAILY
     Route: 048
     Dates: start: 200703
  6. ENDEP [Concomitant]
     Dosage: 75 MG, TWO NOCTE
     Route: 048
     Dates: start: 200909
  7. PARACETAMOL [Concomitant]
     Dosage: 500 MG, TWO TDS OR QID
     Route: 048
     Dates: start: 200204
  8. XALATAN [Concomitant]
     Dosage: ONE DROP NOCTE
     Dates: start: 200402

REACTIONS (6)
  - Skin cancer [Recovered/Resolved]
  - Pubis fracture [Recovered/Resolved]
  - Underdose [Not Recovered/Not Resolved]
  - Poor venous access [Unknown]
  - Infusion site swelling [Recovered/Resolved]
  - Infusion site haematoma [Unknown]
